FAERS Safety Report 4660384-6 (Version None)
Quarter: 2005Q2

REPORT INFORMATION
  Report Type: 
  Country: None (occurrence: None)
  Receive Date: 20050512
  Receipt Date: 20050429
  Transmission Date: 20051028
  Serious: Yes (Hospitalization)
  Sender: FDA-Public Use
  Company Number: DE-JNJFOC-20050301460

PATIENT
  Age: 36 Year
  Sex: Female

DRUGS (6)
  1. RISPERDAL [Suspect]
     Route: 049
  2. RISPERDAL [Suspect]
     Route: 049
  3. RISPERDAL [Suspect]
     Route: 049
  4. RISPERDAL [Suspect]
     Indication: DRUG USE FOR UNKNOWN INDICATION
     Dosage: 2-5 MG
     Route: 049
  5. ZOLOFT [Interacting]
     Indication: DRUG USE FOR UNKNOWN INDICATION
     Route: 049
  6. CARBAMAZEPINE [Concomitant]
     Route: 049

REACTIONS (5)
  - AFFECT LABILITY [None]
  - DRUG INTERACTION [None]
  - DRUG LEVEL DECREASED [None]
  - DRUG LEVEL INCREASED [None]
  - GALACTORRHOEA [None]
